FAERS Safety Report 5875988-2 (Version None)
Quarter: 2008Q3

REPORT INFORMATION
  Report Type: 
  Country: None (occurrence: None)
  Receive Date: 20080910
  Receipt Date: 20070919
  Transmission Date: 20090109
  Serious: No
  Sender: FDA-Public Use
  Company Number: US-KINGPHARMUSA00001-K200701219

PATIENT

DRUGS (15)
  1. FLORINEF [Suspect]
     Indication: BLOOD ALDOSTERONE DECREASED
     Dosage: .05 MG, QD
     Route: 048
     Dates: start: 20070907, end: 20070914
  2. LOPRESOR  /00376902/ [Concomitant]
     Indication: TACHYCARDIA
     Dosage: 25 MG, BID
     Route: 048
  3. KEPPRA [Concomitant]
     Indication: MYOCLONUS
     Dosage: 250 MG, BID
     Route: 048
  4. KLONOPIN [Concomitant]
     Indication: MYOCLONUS
     Dosage: 1 MG, QHS
     Route: 048
  5. NEXIUM [Concomitant]
     Indication: REFLUX GASTRITIS
     Dosage: 40 MG, QD
     Route: 048
  6. AMBIEN [Concomitant]
     Indication: INSOMNIA
     Dosage: 10 MG, QHS
     Route: 048
  7. PERCOCET [Concomitant]
     Indication: PAIN
     Dosage: 5/325, PRN, Q6H
     Route: 048
  8. PERCOCET [Concomitant]
     Indication: BREAKTHROUGH PAIN
     Dosage: 10/325, PRN
     Route: 048
  9. COLACE [Concomitant]
     Indication: CONSTIPATION
     Dosage: 100 MG, TID, PRN
     Route: 048
  10. M.V.I. [Concomitant]
     Dosage: 1, QD
     Route: 048
  11. PHENERGAN HCL [Concomitant]
     Indication: NAUSEA
     Dosage: 25 MG, PRN, Q6H
     Route: 048
  12. PHENERGAN HCL [Concomitant]
     Indication: VOMITING
  13. LYRICA [Concomitant]
     Indication: PAIN
     Dosage: 50 MG, TID, PRN
     Route: 048
  14. ZANAFLEX [Concomitant]
     Indication: MUSCLE SPASMS
     Dosage: 2 MG, BID
     Route: 048
  15. TRAZODONE HCL [Concomitant]
     Indication: INSOMNIA
     Dosage: 25 TO 100 MG, QHS, PRN
     Route: 048

REACTIONS (4)
  - AGITATION [None]
  - HEART RATE INCREASED [None]
  - INSOMNIA [None]
  - NERVOUSNESS [None]
